FAERS Safety Report 7313913-8 (Version None)
Quarter: 2011Q1

REPORT INFORMATION
  Report Type: 
  Country: None (occurrence: None)
  Receive Date: 20110216
  Receipt Date: 20110216
  Transmission Date: 20110831
  Serious: Yes (Death, Hospitalization)
  Sender: FDA-Public Use
  Company Number: None

PATIENT
  Sex: Female
  Weight: 131.5 kg

DRUGS (14)
  1. VERAPAMIL EXTENDED-RELEASE [Concomitant]
  2. PACLITAXEL [Suspect]
     Dosage: 350 MG
     Dates: end: 20110204
  3. FENTANYL [Concomitant]
  4. HYDROCODONE-ACETOMINOPHEN [Concomitant]
  5. VITAMIN TAB [Concomitant]
  6. CARBOPLATIN [Suspect]
     Dosage: 724 MG
     Dates: end: 20110204
  7. SYNTHROID [Concomitant]
  8. CELECOXIB [Concomitant]
  9. MICARDIS HCT [Concomitant]
  10. TOPROL-XL [Concomitant]
  11. ACTOS [Concomitant]
  12. CHOLECALCIFEROL [Concomitant]
  13. K-DUR [Concomitant]
  14. LASIX [Concomitant]

REACTIONS (17)
  - BACK PAIN [None]
  - DEHYDRATION [None]
  - CARDIAC ARREST [None]
  - OSTEOARTHRITIS [None]
  - JOINT RANGE OF MOTION DECREASED [None]
  - ATELECTASIS [None]
  - RENAL FAILURE [None]
  - SEPTIC SHOCK [None]
  - ASTHENIA [None]
  - FATIGUE [None]
  - CARDIAC FAILURE CONGESTIVE [None]
  - PANCYTOPENIA [None]
  - RESPIRATORY FAILURE [None]
  - HYPOTENSION [None]
  - DYSSTASIA [None]
  - WHEEZING [None]
  - BACTERIAL INFECTION [None]
